FAERS Safety Report 9850131 (Version 1)
Quarter: 2013Q4

REPORT INFORMATION
  Report Type: Spontaneous
  Country: US (occurrence: None)
  Receive Date: 20131226
  Receipt Date: 20131226
  Transmission Date: 20140711
  Serious: Yes (Life-Threatening, Other)
  Sender: FDA-Public Use
  Company Number: PHEH2013US003176

PATIENT
  Age: 46 Year
  Sex: Male
  Weight: 98 kg

DRUGS (1)
  1. OCTREOTIDE [Suspect]
     Indication: VARICES OESOPHAGEAL
     Dosage: 25 UG , PER HOUR CONTINUOUS INFUSION, INTRAVENOUS
     Route: 041
     Dates: start: 20121218, end: 20121220

REACTIONS (1)
  - Hypoglycaemia [None]
